FAERS Safety Report 4704091-X (Version None)
Quarter: 2005Q2

REPORT INFORMATION
  Report Type: 
  Country: None (occurrence: None)
  Receive Date: 20050629
  Receipt Date: 20041018
  Transmission Date: 20051028
  Serious: Yes (Other)
  Sender: FDA-Public Use
  Company Number: ENTC2004-0198

PATIENT
  Age: 74 Year
  Sex: Male

DRUGS (1)
  1. STALEVO 100 [Suspect]
     Indication: PARKINSONISM
     Dosage: 200 MG (50 MG, 4 IN 1 D) ORAL
     Route: 048

REACTIONS (2)
  - ERYTHEMA [None]
  - HYPERTENSIVE CRISIS [None]
